FAERS Safety Report 15095753 (Version 1)
Quarter: 2018Q3

REPORT INFORMATION
  Report Type: Spontaneous
  Country: US (occurrence: US)
  Receive Date: 20180702
  Receipt Date: 20180702
  Transmission Date: 20181010
  Serious: No
  Sender: FDA-Public Use
  Company Number: US-BAYER-2018-119321

PATIENT
  Age: 78 Year
  Sex: Female
  Weight: 144.99 kg

DRUGS (8)
  1. NAPROXEN SODIUM. [Concomitant]
     Active Substance: NAPROXEN SODIUM
     Dosage: UNK
  2. MAGNESIUM [MAGNESIUM] [Suspect]
     Active Substance: MAGNESIUM
     Dosage: UNK
  3. VALIUM [Concomitant]
     Active Substance: DIAZEPAM
     Dosage: UNK
  4. ALEVE [Suspect]
     Active Substance: NAPROXEN SODIUM
     Indication: PAIN
     Dosage: 2 DF, BID
     Route: 048
  5. LASIX [Concomitant]
     Active Substance: FUROSEMIDE
     Dosage: UNK
  6. ZINC [ZINC] [Suspect]
     Active Substance: ZINC
     Dosage: UNK
  7. AMLODIPIN [Concomitant]
     Active Substance: AMLODIPINE BESYLATE
     Dosage: UNK
  8. CALCIUM C [Concomitant]
     Dosage: UNK

REACTIONS (5)
  - Product use issue [None]
  - Drug ineffective [Unknown]
  - Pain [Unknown]
  - Product prescribing issue [None]
  - Pain [None]
